FAERS Safety Report 8959483 (Version 3)
Quarter: 2013Q2

REPORT INFORMATION
  Report Type: Spontaneous
  Country: US (occurrence: US)
  Receive Date: 20121212
  Receipt Date: 20130510
  Transmission Date: 20140414
  Serious: Yes (Hospitalization)
  Sender: FDA-Public Use
  Company Number: US-BAYER-2012-130235

PATIENT
  Age: 39 Year
  Sex: Female
  Weight: 74.83 kg

DRUGS (7)
  1. BEYAZ [Suspect]
     Indication: ACNE
     Dosage: UNK
     Route: 048
     Dates: start: 20120824, end: 20120921
  2. AMOXICILLIN [Concomitant]
     Indication: ACNE
     Dosage: 1 DF, QD
  3. ESTRACE VAGINAL [Concomitant]
     Route: 067
  4. PRENATAL VITAMINS [Concomitant]
     Dosage: 1 DF, QD
     Route: 048
     Dates: start: 20111005
  5. ZANTAC [Concomitant]
     Dosage: 1 DF, BID
     Route: 048
  6. VALACICLOVIR [Concomitant]
     Dosage: 1 DF, QD
     Dates: start: 20120718
  7. VICODIN [Concomitant]

REACTIONS (7)
  - Deep vein thrombosis [Recovered/Resolved]
  - Pulmonary embolism [None]
  - Pain in extremity [Recovered/Resolved]
  - Local swelling [Recovered/Resolved]
  - Tenderness [Recovered/Resolved]
  - Pain in extremity [Recovered/Resolved]
  - Exposure during pregnancy [None]
